FAERS Safety Report 4661364-7 (Version None)
Quarter: 2005Q2

REPORT INFORMATION
  Report Type: 
  Country: None (occurrence: None)
  Receive Date: 20050512
  Receipt Date: 20050428
  Transmission Date: 20051028
  Serious: Yes (Life-Threatening, Hospitalization)
  Sender: FDA-Public Use
  Company Number: 05-05-0800

PATIENT
  Age: 83 Year
  Sex: Female

DRUGS (4)
  1. TAMOXIFEN CITRATE [Suspect]
     Indication: BREAST CANCER
     Dosage: 20MG ORAL
     Route: 048
     Dates: end: 20050410
  2. THYROXINE SODIUM [Concomitant]
  3. SIMVASTATIN [Concomitant]
  4. NEXIUM [Concomitant]

REACTIONS (2)
  - LONG QT SYNDROME [None]
  - VENTRICULAR TACHYCARDIA [None]
